FAERS Safety Report 10160531 (Version 4)
Quarter: 2015Q1

REPORT INFORMATION
  Report Type: Spontaneous
  Country: US (occurrence: US)
  Receive Date: 20140508
  Receipt Date: 20150112
  Transmission Date: 20150720
  Serious: Yes (Life-Threatening, Hospitalization, Other)
  Sender: FDA-Public Use
  Company Number: US-BAYER-2014-065651

PATIENT
  Age: 35 Year
  Sex: Female
  Weight: 63 kg

DRUGS (5)
  1. PHENERGAN [Concomitant]
     Active Substance: PROMETHAZINE HYDROCHLORIDE
     Dosage: 12.5 MG, Q6H (EVERY 6 HOURS)
     Route: 048
     Dates: start: 20110401
  2. PREDNISONE. [Concomitant]
     Active Substance: PREDNISONE
  3. MIRENA [Suspect]
     Active Substance: LEVONORGESTREL
     Indication: CONTRACEPTION
     Dosage: 20 MCG/24HR, CONT
     Route: 015
     Dates: start: 20090424, end: 20110720
  4. ZOFRAN [Concomitant]
     Active Substance: ONDANSETRON HYDROCHLORIDE
     Dosage: 8 MG, TID
     Route: 048
     Dates: start: 20110401
  5. LODINE [Concomitant]
     Active Substance: ETODOLAC
     Dosage: 400 MG, BID
     Route: 048
     Dates: start: 20110401

REACTIONS (18)
  - Emotional distress [None]
  - Anxiety [None]
  - Decreased appetite [None]
  - Uterine perforation [Recovered/Resolved]
  - Injury [Recovered/Resolved]
  - Abdominal pain [Recovered/Resolved]
  - Anhedonia [None]
  - Complication of device removal [None]
  - Pain [Recovered/Resolved]
  - Depression [None]
  - Infection [None]
  - Ovarian cyst [None]
  - General physical health deterioration [Recovered/Resolved]
  - Post procedural haemorrhage [None]
  - Procedural pain [None]
  - Fatigue [None]
  - Genital haemorrhage [None]
  - Medical device pain [None]

NARRATIVE: CASE EVENT DATE: 201105
